FAERS Safety Report 19962920 (Version 1)
Quarter: 2021Q4

REPORT INFORMATION
  Report Type: Spontaneous
  Country: US (occurrence: US)
  Receive Date: 20211015
  Receipt Date: 20211015
  Transmission Date: 20220303
  Serious: Yes (Other)
  Sender: FDA-Public Use
  Company Number: None

PATIENT
  Age: 51 Year
  Sex: Male

DRUGS (1)
  1. BAMLANIVIMAB\ETESEVIMAB [Suspect]
     Active Substance: BAMLANIVIMAB\ETESEVIMAB
     Indication: COVID-19 treatment
     Dosage: ?          OTHER FREQUENCY:ONCE;
     Route: 042
     Dates: start: 20211015, end: 20211015

REACTIONS (7)
  - Infusion related reaction [None]
  - Hyperhidrosis [None]
  - Blood pressure increased [None]
  - Feeling hot [None]
  - Nausea [None]
  - Heart rate decreased [None]
  - Malaise [None]

NARRATIVE: CASE EVENT DATE: 20211015
